FAERS Safety Report 15536512 (Version 1)
Quarter: 2018Q4

REPORT INFORMATION
  Report Type: Spontaneous
  Country: US (occurrence: US)
  Receive Date: 20181022
  Receipt Date: 20181022
  Transmission Date: 20190205
  Serious: Yes (Life-Threatening, Disabling)
  Sender: FDA-Public Use
  Company Number: None

PATIENT
  Age: 49 Year
  Sex: Female

DRUGS (7)
  1. PHENERGAN [Concomitant]
     Active Substance: PROMETHAZINE HYDROCHLORIDE
  2. AIMOVIG [Suspect]
     Active Substance: ERENUMAB-AOOE
     Indication: MIGRAINE
     Dosage: ?          QUANTITY:2 INJECTION(S);OTHER FREQUENCY:MONTHLY;?
     Route: 058
     Dates: start: 20180828
  3. LAMICTAL [Concomitant]
     Active Substance: LAMOTRIGINE
  4. CYPROHEPTADINE. [Concomitant]
     Active Substance: CYPROHEPTADINE
  5. LITHIUM. [Concomitant]
     Active Substance: LITHIUM
  6. TIZANIDINE. [Concomitant]
     Active Substance: TIZANIDINE
  7. NORTRIPTAN [Concomitant]

REACTIONS (8)
  - Impaired driving ability [None]
  - Gastric disorder [None]
  - Vision blurred [None]
  - Eye pruritus [None]
  - Anger [None]
  - Feeling abnormal [None]
  - Migraine [None]
  - Musculoskeletal stiffness [None]

NARRATIVE: CASE EVENT DATE: 20180828
